FAERS Safety Report 19483665 (Version 1)
Quarter: 2021Q3

REPORT INFORMATION
  Report Type: Report from Study
  Country: MX (occurrence: MX)
  Receive Date: 20210701
  Receipt Date: 20210701
  Transmission Date: 20211014
  Serious: Yes (Other)
  Sender: FDA-Public Use
  Company Number: NVSC2021MX147404

PATIENT
  Sex: Female
  Weight: 70 kg

DRUGS (1)
  1. EXFORGE [Suspect]
     Active Substance: AMLODIPINE BESYLATE\VALSARTAN
     Indication: BLOOD PRESSURE INCREASED
     Dosage: 1 DF, BID
     Route: 065

REACTIONS (4)
  - Neuropathy peripheral [Unknown]
  - General physical health deterioration [Unknown]
  - Diabetic complication [Unknown]
  - Inappropriate schedule of product administration [Unknown]
